FAERS Safety Report 19312670 (Version 1)
Quarter: 2021Q2

REPORT INFORMATION
  Report Type: Spontaneous
  Country: US (occurrence: US)
  Receive Date: 20210526
  Receipt Date: 20210526
  Transmission Date: 20210717
  Serious: Yes (Hospitalization, Other)
  Sender: FDA-Public Use
  Company Number: None

PATIENT
  Sex: Female

DRUGS (11)
  1. BIOTIN [Concomitant]
     Active Substance: BIOTIN
     Dates: start: 20201123
  2. FISH OIL [Concomitant]
     Active Substance: FISH OIL
     Dates: start: 20201123
  3. BACLOFEN. [Concomitant]
     Active Substance: BACLOFEN
     Dates: start: 20200618
  4. VTAMIN D3 [Concomitant]
     Dates: start: 20201123
  5. CYMBALTA [Concomitant]
     Active Substance: DULOXETINE HYDROCHLORIDE
     Dates: start: 20201123
  6. MAXALT [Concomitant]
     Active Substance: RIZATRIPTAN BENZOATE
     Dates: start: 20201123
  7. MULTIVITAMIN TAB WOMENS [Concomitant]
     Dates: start: 20201123
  8. CURCUMIN [Concomitant]
     Active Substance: CURCUMIN
     Dates: start: 20201123
  9. DIMETHYL FUM CAPSULE [Suspect]
     Active Substance: DIMETHYL FUMARATE
     Indication: MULTIPLE SCLEROSIS
     Dosage: ?          OTHER FREQUENCY:TWICE DAILY;?
     Route: 048
     Dates: start: 20210226
  10. HYDROCHLOROT [Concomitant]
     Active Substance: HYDROCHLOROTHIAZIDE
     Dates: start: 20200618
  11. COREG [Concomitant]
     Active Substance: CARVEDILOL
     Dates: start: 20200618

REACTIONS (2)
  - Hypoaesthesia [None]
  - Paraesthesia [None]
